FAERS Safety Report 5567988-7 (Version None)
Quarter: 2007Q4

REPORT INFORMATION
  Report Type: 
  Country: None (occurrence: None)
  Receive Date: 20071220
  Receipt Date: 20071214
  Transmission Date: 20080405
  Serious: Yes (Hospitalization)
  Sender: FDA-Public Use
  Company Number: US-JNJFOC-20071204044

PATIENT
  Age: 36 Year
  Sex: Female
  Weight: 54.43 kg

DRUGS (1)
  1. LEVAQUIN [Suspect]
     Indication: PYELONEPHRITIS
     Route: 042

REACTIONS (3)
  - HEADACHE [None]
  - NECK PAIN [None]
  - VISION BLURRED [None]
